FAERS Safety Report 9421012 (Version 1)
Quarter: 2013Q3

REPORT INFORMATION
  Report Type: Spontaneous
  Country: CH (occurrence: CH)
  Receive Date: 20130725
  Receipt Date: 20130725
  Transmission Date: 20140515
  Serious: Yes (Hospitalization)
  Sender: FDA-Public Use
  Company Number: CH-ROCHE-1228679

PATIENT
  Age: 7 Day
  Sex: Female
  Weight: 2.6 kg

DRUGS (6)
  1. VALCYTE [Suspect]
     Indication: CONGENITAL CYTOMEGALOVIRUS INFECTION
     Route: 048
     Dates: start: 20130321
  2. CYMEVENE [Suspect]
     Indication: CONGENITAL CYTOMEGALOVIRUS INFECTION
     Route: 041
     Dates: start: 20130202, end: 20130317
  3. CYMEVENE [Suspect]
     Indication: OFF LABEL USE
  4. VALACYCLOVIR [Suspect]
     Indication: CONGENITAL CYTOMEGALOVIRUS INFECTION
     Route: 048
     Dates: start: 201304, end: 20130427
  5. ACICLOVIR [Concomitant]
  6. CEFTRIAXONE SODIUM [Concomitant]
     Route: 065

REACTIONS (5)
  - Drug prescribing error [Unknown]
  - Product name confusion [Unknown]
  - Convulsion [Recovering/Resolving]
  - Cytomegalovirus infection [Unknown]
  - Hypophagia [Unknown]
